FAERS Safety Report 13305467 (Version 1)
Quarter: 2017Q1

REPORT INFORMATION
  Report Type: Spontaneous
  Country: US (occurrence: US)
  Receive Date: 20170308
  Receipt Date: 20170308
  Transmission Date: 20170428
  Serious: No
  Sender: FDA-Public Use
  Company Number: US-BAUSCH-BL-2016-031563

PATIENT
  Sex: Female

DRUGS (2)
  1. UCERIS [Suspect]
     Active Substance: BUDESONIDE
     Indication: COLITIS
     Route: 065
     Dates: start: 20160702
  2. UCERIS [Suspect]
     Active Substance: BUDESONIDE
     Dosage: HALF TABLET
     Route: 065

REACTIONS (2)
  - Treatment noncompliance [Unknown]
  - Malaise [Unknown]
